FAERS Safety Report 7825187-X (Version None)
Quarter: 2011Q4

REPORT INFORMATION
  Report Type: 
  Country: None (occurrence: None)
  Receive Date: 20111019
  Receipt Date: 20111018
  Transmission Date: 20120403
  Serious: Yes (Other)
  Sender: FDA-Public Use
  Company Number: US-PFIZER INC-2011251214

PATIENT
  Sex: Female
  Weight: 54.422 kg

DRUGS (3)
  1. ZOLOFT [Suspect]
     Indication: EATING DISORDER
     Dosage: 200 MG, 1X/DAY
     Route: 048
     Dates: start: 20110601, end: 20110901
  2. ZOLOFT [Suspect]
     Indication: DEPRESSION
  3. SEROQUEL [Concomitant]
     Dosage: UNK, 1X/DAY

REACTIONS (2)
  - DEPRESSION [None]
  - INSOMNIA [None]
